FAERS Safety Report 17625703 (Version 2)
Quarter: 2020Q3

REPORT INFORMATION
  Report Type: Spontaneous
  Country: CA (occurrence: CA)
  Receive Date: 20200404
  Receipt Date: 20200702
  Transmission Date: 20201102
  Serious: Yes (Other)
  Sender: FDA-Public Use
  Company Number: CA-SAMSUNG BIOEPIS-SB-2020-10740

PATIENT
  Age: 26 Year
  Sex: Female

DRUGS (4)
  1. INFLIXIMAB [Suspect]
     Active Substance: INFLIXIMAB
     Indication: COLITIS ULCERATIVE
     Route: 042
  2. INFLIXIMAB [Suspect]
     Active Substance: INFLIXIMAB
     Route: 042
  3. PENTASA [Concomitant]
     Active Substance: MESALAMINE
     Indication: PRODUCT USED FOR UNKNOWN INDICATION
     Route: 048
  4. SERTRALINE HYDROCHLORIDE. [Concomitant]
     Active Substance: SERTRALINE HYDROCHLORIDE
     Indication: PRODUCT USED FOR UNKNOWN INDICATION
     Route: 048

REACTIONS (9)
  - Off label use [Recovered/Resolved]
  - Muscle spasms [Recovered/Resolved]
  - Intentional product use issue [Recovered/Resolved]
  - Faecal calprotectin increased [Recovered/Resolved]
  - Malaise [Recovered/Resolved]
  - Condition aggravated [Recovered/Resolved]
  - Bronchitis [Recovered/Resolved]
  - Fatigue [Recovered/Resolved]
  - Pain [Recovered/Resolved]
